FAERS Safety Report 18782014 (Version 1)
Quarter: 2021Q1

REPORT INFORMATION
  Report Type: Spontaneous
  Country: US (occurrence: US)
  Receive Date: 20210125
  Receipt Date: 20210125
  Transmission Date: 20210419
  Serious: No
  Sender: FDA-Public Use
  Company Number: US-ALLERGAN-2013119US

PATIENT
  Sex: Female

DRUGS (1)
  1. RESTASIS [Suspect]
     Active Substance: CYCLOSPORINE
     Indication: DRY EYE
     Dosage: 2 GTT, BID
     Route: 047
     Dates: start: 20200305

REACTIONS (4)
  - Eyelid rash [Recovered/Resolved]
  - Eye pain [Recovered/Resolved]
  - Eczema eyelids [Recovered/Resolved]
  - Balance disorder [Recovered/Resolved]
